FAERS Safety Report 16742465 (Version 2)
Quarter: 2019Q3

REPORT INFORMATION
  Report Type: Spontaneous
  Country: DE (occurrence: DE)
  Receive Date: 20190826
  Receipt Date: 20190905
  Transmission Date: 20191005
  Serious: Yes (Death, Life-Threatening, Other)
  Sender: FDA-Public Use
  Company Number: DE-JNJFOC-20190827475

PATIENT
  Age: 76 Year
  Sex: Female
  Weight: 70 kg

DRUGS (4)
  1. LACOSAMIDE. [Concomitant]
     Active Substance: LACOSAMIDE
     Indication: EPILEPSY
  2. ESOMEPRAZOLE. [Concomitant]
     Active Substance: ESOMEPRAZOLE MAGNESIUM
     Indication: PROPHYLAXIS AGAINST GASTROINTESTINAL ULCER
  3. L THYROXIN [Concomitant]
     Active Substance: LEVOTHYROXINE SODIUM
     Indication: THYROIDECTOMY
  4. RIVAROXABAN [Suspect]
     Active Substance: RIVAROXABAN
     Indication: ATRIAL FIBRILLATION
     Dosage: 20 MG, QD
     Route: 048
     Dates: start: 20190627, end: 20190802

REACTIONS (4)
  - Rash [Unknown]
  - Haematemesis [Fatal]
  - Aspiration [Fatal]
  - Nausea [Fatal]

NARRATIVE: CASE EVENT DATE: 20190717
